FAERS Safety Report 8351402-2 (Version None)
Quarter: 2012Q2

REPORT INFORMATION
  Report Type: 
  Country: None (occurrence: None)
  Receive Date: 20120510
  Receipt Date: 20120502
  Transmission Date: 20120825
  Serious: Yes (Other)
  Sender: FDA-Public Use
  Company Number: US-ASTRAZENECA-2012SE28781

PATIENT
  Age: 53 Year
  Sex: Female

DRUGS (4)
  1. NEXIUM [Suspect]
     Route: 048
  2. CRESTOR [Suspect]
     Route: 048
  3. NEXIUM [Suspect]
     Route: 048
  4. RADIATION [Suspect]
     Route: 065

REACTIONS (3)
  - RADIATION OESOPHAGITIS [None]
  - OFF LABEL USE [None]
  - OSTEOPOROSIS [None]
